FAERS Safety Report 15616772 (Version 1)
Quarter: 2018Q4

REPORT INFORMATION
  Report Type: Spontaneous
  Country: FR (occurrence: FR)
  Receive Date: 20181114
  Receipt Date: 20181114
  Transmission Date: 20190205
  Serious: Yes (Other)
  Sender: FDA-Public Use
  Company Number: FR-EMD SERONO-9050918

PATIENT
  Age: 35 Year
  Sex: Female

DRUGS (1)
  1. GONAL-F [Suspect]
     Active Substance: FOLLITROPIN
     Indication: IN VITRO FERTILISATION

REACTIONS (6)
  - Headache [Unknown]
  - Renal pain [Unknown]
  - Hydrosalpinx [Unknown]
  - Impatience [Unknown]
  - Ovarian disorder [Unknown]
  - Neuralgia [Unknown]
